APPROVED DRUG PRODUCT: AMPICILLIN SODIUM
Active Ingredient: AMPICILLIN SODIUM
Strength: EQ 2GM BASE/VIAL
Dosage Form/Route: INJECTABLE;INJECTION
Application: A202864 | Product #004
Applicant: HOSPIRA INC
Approved: Sep 4, 2015 | RLD: No | RS: No | Type: DISCN